FAERS Safety Report 7301711-0 (Version None)
Quarter: 2011Q1

REPORT INFORMATION
  Report Type: 
  Country: None (occurrence: None)
  Receive Date: 20110218
  Receipt Date: 20110209
  Transmission Date: 20110831
  Serious: Yes (Other)
  Sender: FDA-Public Use
  Company Number: JP-ROCHE-719658

PATIENT
  Sex: Female
  Weight: 40 kg

DRUGS (19)
  1. TOCILIZUMAB [Suspect]
     Indication: RHEUMATOID ARTHRITIS
     Route: 041
     Dates: start: 20090526, end: 20090526
  2. TOCILIZUMAB [Suspect]
     Route: 041
     Dates: start: 20090721, end: 20090721
  3. TOCILIZUMAB [Suspect]
     Route: 041
     Dates: start: 20090818, end: 20090818
  4. TOCILIZUMAB [Suspect]
     Route: 041
     Dates: start: 20100406, end: 20100406
  5. CELCOX [Concomitant]
     Route: 048
  6. TOCILIZUMAB [Suspect]
     Route: 041
     Dates: start: 20100302, end: 20100302
  7. PREDNISOLONE [Concomitant]
     Route: 048
     Dates: end: 20090721
  8. TOCILIZUMAB [Suspect]
     Route: 041
     Dates: start: 20091222, end: 20091222
  9. TOCILIZUMAB [Suspect]
     Route: 041
     Dates: start: 20100126, end: 20100126
  10. TOCILIZUMAB [Suspect]
     Route: 041
     Dates: start: 20090623, end: 20090623
  11. TOCILIZUMAB [Suspect]
     Route: 041
     Dates: start: 20091013, end: 20091013
  12. TOCILIZUMAB [Suspect]
     Route: 041
     Dates: start: 20100311
  13. PREDNISOLONE [Concomitant]
     Route: 048
     Dates: start: 20090722
  14. SELBEX [Concomitant]
     Route: 048
  15. GASTER [Concomitant]
     Route: 048
  16. TOCILIZUMAB [Suspect]
     Route: 041
     Dates: start: 20090905, end: 20090905
  17. TOCILIZUMAB [Suspect]
     Route: 041
     Dates: start: 20091117, end: 20091117
  18. ALENDRONATE SODIUM [Concomitant]
     Route: 048
  19. METHOTREXATE [Suspect]
     Indication: RHEUMATOID ARTHRITIS
     Route: 048
     Dates: end: 20091013

REACTIONS (4)
  - HEPATIC CONGESTION [None]
  - TRICUSPID VALVE INCOMPETENCE [None]
  - STOMATITIS [None]
  - CARDIAC FAILURE CONGESTIVE [None]
